FAERS Safety Report 4567958-1 (Version None)
Quarter: 2005Q1

REPORT INFORMATION
  Report Type: 
  Country: None (occurrence: None)
  Receive Date: 20050131
  Receipt Date: 20050118
  Transmission Date: 20050727
  Serious: Yes (Hospitalization)
  Sender: FDA-Public Use
  Company Number: B0365424A

PATIENT
  Age: 23 Year
  Sex: Male

DRUGS (2)
  1. WELLBUTRIN SR [Suspect]
     Indication: DEPRESSION
     Dosage: SEE DOSAGE TEXT / ORAL
     Route: 048
  2. MIDAZOLAM TABLET (MIDAZOLAM) [Suspect]
     Dosage: 14 TABLET / SINGLE DOSE / ORAL
     Route: 048

REACTIONS (10)
  - AGGRESSION [None]
  - DEPRESSION [None]
  - IRRITABILITY [None]
  - MULTIPLE DRUG OVERDOSE [None]
  - PARANOIA [None]
  - PSYCHOMOTOR AGITATION [None]
  - PSYCHOTIC DISORDER [None]
  - RESPIRATORY RATE INCREASED [None]
  - SOMNOLENCE [None]
  - SUICIDE ATTEMPT [None]
